FAERS Safety Report 6917693-7 (Version None)
Quarter: 2010Q3

REPORT INFORMATION
  Report Type: 
  Country: None (occurrence: None)
  Receive Date: 20100810
  Receipt Date: 20100805
  Transmission Date: 20110219
  Serious: Yes (Death)
  Sender: FDA-Public Use
  Company Number: PHHY2010TW12790

PATIENT

DRUGS (1)
  1. EXJADE [Suspect]

REACTIONS (1)
  - ACUTE MYELOID LEUKAEMIA [None]
